FAERS Safety Report 5476439-2 (Version None)
Quarter: 2007Q4

REPORT INFORMATION
  Report Type: 
  Country: None (occurrence: None)
  Receive Date: 20071003
  Receipt Date: 20070926
  Transmission Date: 20080405
  Serious: Yes (Other)
  Sender: FDA-Public Use
  Company Number: FR-PFIZER INC-2007080755

PATIENT
  Sex: Female

DRUGS (1)
  1. SOMAVERT [Suspect]
     Route: 058

REACTIONS (1)
  - LYMPHOMA [None]
